FAERS Safety Report 25859959 (Version 1)
Quarter: 2025Q3

REPORT INFORMATION
  Report Type: Spontaneous
  Country: US (occurrence: None)
  Receive Date: 20250927
  Receipt Date: 20250927
  Transmission Date: 20251021
  Serious: Yes (Other)
  Sender: FDA-CTU
  Company Number: None

PATIENT
  Age: 67 Year
  Sex: Female
  Weight: 65.25 kg

DRUGS (5)
  1. LEVOFLOXACIN [Suspect]
     Active Substance: LEVOFLOXACIN
     Indication: Sinusitis
     Dosage: OTHER QUANTITY : 14 TABLET(S);?FREQUENCY : DAILY;?
     Route: 048
     Dates: start: 20250822, end: 20250829
  2. PREDNISONE [Suspect]
     Active Substance: PREDNISONE
  3. Sertraline 25 mg x 1 daily [Concomitant]
  4. Alprazolam 0.05 x1 daily as needed [Concomitant]
  5. Vitamin D3 once daily [Concomitant]

REACTIONS (5)
  - Arthralgia [None]
  - Joint swelling [None]
  - Joint effusion [None]
  - X-ray limb abnormal [None]
  - Product communication issue [None]

NARRATIVE: CASE EVENT DATE: 20250829
